FAERS Safety Report 6986860-9 (Version None)
Quarter: 2010Q3

REPORT INFORMATION
  Report Type: 
  Country: None (occurrence: None)
  Receive Date: 20100915
  Receipt Date: 20090813
  Transmission Date: 20110219
  Serious: No
  Sender: FDA-Public Use
  Company Number: US-WYE-H10604009

PATIENT
  Sex: Female
  Weight: 73.55 kg

DRUGS (8)
  1. PRISTIQ [Suspect]
     Indication: DEPRESSION
     Route: 048
     Dates: start: 20090812, end: 20090812
  2. LISINOPRIL AND HYDROCHLOROTHIAZIDE [Concomitant]
  3. FOLIC ACID [Concomitant]
  4. OXYCONTIN [Concomitant]
  5. GLIPIZIDE [Concomitant]
  6. METFORMIN [Concomitant]
  7. XANAX [Concomitant]
  8. ZOCOR [Concomitant]

REACTIONS (2)
  - INITIAL INSOMNIA [None]
  - MIDDLE INSOMNIA [None]
